FAERS Safety Report 22890320 (Version 2)
Quarter: 2024Q2

REPORT INFORMATION
  Report Type: Report from Study
  Country: TW (occurrence: TW)
  Receive Date: 20230831
  Receipt Date: 20240426
  Transmission Date: 20240715
  Serious: Yes (Hospitalization, Other)
  Sender: FDA-Public Use
  Company Number: TW-JAZZ PHARMACEUTICALS-2023-TW-018372

PATIENT
  Age: 18 Year
  Sex: Female
  Weight: 45 kg

DRUGS (1)
  1. EPIDIOLEX [Suspect]
     Active Substance: CANNABIDIOL
     Indication: Tuberous sclerosis complex
     Dosage: 0.5 MILLILITER, BID

REACTIONS (4)
  - Seizure [Unknown]
  - Somnolence [Unknown]
  - Daydreaming [Unknown]
  - Weight decreased [Unknown]
